FAERS Safety Report 5549319-1 (Version None)
Quarter: 2007Q4

REPORT INFORMATION
  Report Type: 
  Country: None (occurrence: None)
  Receive Date: 20071212
  Receipt Date: 20071129
  Transmission Date: 20080405
  Serious: Yes (Other)
  Sender: FDA-Public Use
  Company Number: AT-BAYER-AT-2007-024790

PATIENT
  Age: 43 Year
  Sex: Female

DRUGS (1)
  1. MIRENA [Suspect]
     Indication: CONTRACEPTION
     Dosage: TOTAL DAILY DOSE: 20 ?G/D  UNIT DOSE: 20 ?G/D
     Route: 015
     Dates: start: 20050101

REACTIONS (1)
  - CEREBROVASCULAR ACCIDENT [None]
